FAERS Safety Report 19275855 (Version 1)
Quarter: 2021Q2

REPORT INFORMATION
  Report Type: Spontaneous
  Country: US (occurrence: US)
  Receive Date: 20210519
  Receipt Date: 20210519
  Transmission Date: 20210717
  Serious: No
  Sender: FDA-Public Use
  Company Number: US-IPSEN BIOPHARMACEUTICALS, INC.-2021-12159

PATIENT
  Age: 51 Year
  Sex: Female

DRUGS (14)
  1. VITAMIN D [Concomitant]
     Active Substance: VITAMIN D NOS
  2. LISINOPRIL. [Concomitant]
     Active Substance: LISINOPRIL
     Indication: HYPERTENSION
  3. DYSPORT [Suspect]
     Active Substance: ABOBOTULINUMTOXINA
     Indication: SKIN WRINKLING
     Dosage: 180 IU TO THE GLABELLA, FOREHEAD, CROW^S FEET, PLATYSMAL BANDS (STRENGTH: NOT REPORTED)
     Route: 030
     Dates: start: 20210506, end: 20210506
  4. DYSPORT [Suspect]
     Active Substance: ABOBOTULINUMTOXINA
     Indication: SKIN WRINKLING
  5. DYSPORT [Suspect]
     Active Substance: ABOBOTULINUMTOXINA
     Indication: OFF LABEL USE
  6. RESTYLANE REFYNE [Suspect]
     Active Substance: HYALURONIC ACID\LIDOCAINE
     Indication: SKIN WRINKLING
     Dosage: 5 CC TO THE LIPS
     Route: 065
     Dates: start: 20210506, end: 20210506
  7. VITAMIN B7 [Concomitant]
  8. SERTRALINE [Concomitant]
     Active Substance: SERTRALINE HYDROCHLORIDE
  9. RESTYLANE DEFYNE [Suspect]
     Active Substance: HYALURONIC ACID\LIDOCAINE
     Indication: SKIN WRINKLING
     Dosage: 1CC INTO CHEEKS
     Route: 065
     Dates: start: 20210506, end: 20210506
  10. THYROXIN [Concomitant]
     Active Substance: LEVOTHYROXINE
     Indication: THYROID DISORDER
  11. DYSPORT [Suspect]
     Active Substance: ABOBOTULINUMTOXINA
     Indication: SKIN WRINKLING
  12. RESTYLANE LYFT [Suspect]
     Active Substance: HYALURONIC ACID
     Indication: SKIN WRINKLING
     Dosage: 4CC INTO CHEEKS
     Route: 065
     Dates: start: 20210506, end: 20210506
  13. DYSPORT [Suspect]
     Active Substance: ABOBOTULINUMTOXINA
     Indication: SKIN WRINKLING
  14. BISPHOSPHONATE [Concomitant]
     Active Substance: UNSPECIFIED INGREDIENT

REACTIONS (5)
  - Swelling face [Recovered/Resolved]
  - Hyperaemia [Recovered/Resolved]
  - Off label use [Unknown]
  - Erythema [Unknown]
  - Lip swelling [Unknown]

NARRATIVE: CASE EVENT DATE: 20210506
